FAERS Safety Report 9809112 (Version 1)
Quarter: 2014Q1

REPORT INFORMATION
  Report Type: Spontaneous
  Country: SG (occurrence: SG)
  Receive Date: 20140110
  Receipt Date: 20140110
  Transmission Date: 20141002
  Serious: Yes (Hospitalization)
  Sender: FDA-Public Use
  Company Number: PHHY2014SG001412

PATIENT
  Age: 75 Year
  Sex: Female

DRUGS (1)
  1. WARFARIN [Suspect]
     Indication: ATRIAL FIBRILLATION

REACTIONS (2)
  - Muscle oedema [Recovered/Resolved]
  - Muscle haemorrhage [Recovered/Resolved]
